FAERS Safety Report 10078318 (Version 1)
Quarter: 2014Q2

REPORT INFORMATION
  Report Type: Spontaneous
  Country: AT (occurrence: AT)
  Receive Date: 20140415
  Receipt Date: 20140415
  Transmission Date: 20141212
  Serious: Yes (Other)
  Sender: FDA-Public Use
  Company Number: AT-AMGEN INC.-AUTSP2014026686

PATIENT
  Sex: Female

DRUGS (3)
  1. ENBREL [Suspect]
     Indication: PSORIASIS
     Dosage: 50 MG, 2X/WEEK
     Route: 065
     Dates: start: 201306, end: 201310
  2. ENBREL [Suspect]
     Dosage: 50 MG, WEEKLY
     Route: 065
     Dates: start: 201311, end: 201402
  3. QUANTALAN [Concomitant]
     Dosage: UNK

REACTIONS (3)
  - Neoplasm malignant [Recovered/Resolved]
  - Decreased appetite [Unknown]
  - Weight decreased [Unknown]
